FAERS Safety Report 18370618 (Version 1)
Quarter: 2020Q4

REPORT INFORMATION
  Report Type: Spontaneous
  Country: US (occurrence: US)
  Receive Date: 20201012
  Receipt Date: 20201012
  Transmission Date: 20210114
  Serious: Yes (Other)
  Sender: FDA-Public Use
  Company Number: US-SA-2020SA279784

PATIENT

DRUGS (12)
  1. HYDRALAZINE [Concomitant]
     Active Substance: HYDRALAZINE HYDROCHLORIDE
  2. AMITRIPTYLINE [Concomitant]
     Active Substance: AMITRIPTYLINE
  3. DUPIXENT [Suspect]
     Active Substance: DUPILUMAB
     Dosage: UNK
  4. NEURONTIN [Concomitant]
     Active Substance: GABAPENTIN
     Dosage: UNK
  5. ISOSORBIDE MN [Concomitant]
     Active Substance: ISOSORBIDE MONONITRATE
  6. ALENDRONATE [Concomitant]
     Active Substance: ALENDRONATE SODIUM
  7. IRBESARTAN. [Concomitant]
     Active Substance: IRBESARTAN
  8. LATANOPROST. [Concomitant]
     Active Substance: LATANOPROST
     Route: 047
  9. METFORMIN [Concomitant]
     Active Substance: METFORMIN HYDROCHLORIDE
  10. AMLODIPINE [Concomitant]
     Active Substance: AMLODIPINE BESYLATE
  11. FUROSEMIDE. [Concomitant]
     Active Substance: FUROSEMIDE
  12. PRESERVISION [Concomitant]
     Active Substance: MINERALS\VITAMINS

REACTIONS (3)
  - Cerebrovascular accident [Unknown]
  - Dizziness [Unknown]
  - Off label use [Unknown]
